FAERS Safety Report 5012966-X (Version None)
Quarter: 2006Q2

REPORT INFORMATION
  Report Type: 
  Country: None (occurrence: None)
  Receive Date: 20060530
  Receipt Date: 20060518
  Transmission Date: 20061013
  Serious: Yes (Hospitalization)
  Sender: FDA-Public Use
  Company Number: FR-AVENTIS-200611906FR

PATIENT
  Age: 85 Year
  Sex: Female
  Weight: 50 kg

DRUGS (7)
  1. LOVENOX [Suspect]
     Indication: PHLEBITIS
     Route: 058
     Dates: start: 20060321, end: 20060329
  2. LOVENOX [Suspect]
     Indication: THROMBOPHLEBITIS
     Route: 058
     Dates: start: 20060321, end: 20060329
  3. CLAMOXYL [Suspect]
     Indication: GASTROENTERITIS
     Route: 048
     Dates: start: 20060324, end: 20060330
  4. OLMETEC                                 /GFR/ [Suspect]
     Indication: ESSENTIAL HYPERTENSION
     Route: 048
     Dates: end: 20060330
  5. PREVISCAN [Suspect]
     Route: 048
     Dates: start: 20060322, end: 20060329
  6. CLARITHROMYCIN [Suspect]
     Indication: GASTROENTERITIS
     Route: 048
     Dates: start: 20060325, end: 20060330
  7. LEVOTHYROX [Concomitant]
     Indication: HYPOTHYROIDISM
     Route: 048

REACTIONS (8)
  - ANAEMIA [None]
  - BLOOD ALKALINE PHOSPHATASE INCREASED [None]
  - BLOOD SODIUM DECREASED [None]
  - GAMMA-GLUTAMYLTRANSFERASE INCREASED [None]
  - HAEMATOMA [None]
  - INTERNATIONAL NORMALISED RATIO INCREASED [None]
  - MUSCLE HAEMORRHAGE [None]
  - RENAL FAILURE [None]
